FAERS Safety Report 8453048-4 (Version None)
Quarter: 2012Q2

REPORT INFORMATION
  Report Type: 
  Country: None (occurrence: None)
  Receive Date: 20120620
  Receipt Date: 20120613
  Transmission Date: 20120825
  Serious: Yes (Hospitalization)
  Sender: FDA-Public Use
  Company Number: PHHO2011US11340

PATIENT
  Sex: Male
  Weight: 116.1 kg

DRUGS (21)
  1. ILARIS [Suspect]
     Dosage: DOUBLE-BLIND
     Route: 030
     Dates: start: 20110602
  2. PLAVIX [Concomitant]
     Indication: PROPHYLAXIS
     Dosage: 75 MG, QD
     Route: 048
     Dates: start: 20100312
  3. TRIAMCINOLONE [Concomitant]
     Indication: ARTHRITIS
     Dosage: 10/0
     Route: 061
     Dates: start: 20100312
  4. METOPROLOL TARTRATE [Concomitant]
     Indication: HYPERTENSION
     Dosage: 25 MG, BID
     Route: 048
     Dates: start: 20100722, end: 20110602
  5. TRIAMCINOLONE ACETONIDE [Suspect]
     Indication: GOUTY ARTHRITIS
     Dosage: DOUBLE-BLIND
     Route: 030
     Dates: start: 20110602
  6. TRAMADOL HCL [Concomitant]
     Indication: PAIN
     Dosage: 50 MG, PRN
     Route: 048
     Dates: start: 20100713
  7. FUROSEMIDE [Suspect]
     Indication: OEDEMA
     Dosage: 80 MG, QD
     Route: 048
     Dates: start: 20100317
  8. JANUVIA [Concomitant]
     Indication: DIABETES MELLITUS
     Dosage: 100 MG, QD
     Route: 048
     Dates: start: 20091118
  9. ACARBOSE [Concomitant]
     Indication: DIABETES MELLITUS
     Dosage: 50 MG, TID
     Route: 048
     Dates: start: 20100325
  10. SIMVASTATIN [Concomitant]
     Indication: HYPERCHOLESTEROLAEMIA
     Dosage: 80 MG, QD
     Route: 048
     Dates: start: 20100722
  11. COLCHICINE [Concomitant]
     Indication: GOUT
     Dosage: 0.6 MG, BID
     Route: 048
     Dates: start: 20100920
  12. PLACEBO [Suspect]
     Indication: GOUTY ARTHRITIS
     Dosage: DOUBLE-BLIND
     Route: 030
     Dates: start: 20110602
  13. CARDURA [Concomitant]
     Indication: BENIGN PROSTATIC HYPERPLASIA
     Dosage: 4 MG, QD
     Route: 048
     Dates: start: 20091217, end: 20110513
  14. NITROGLYCERIN [Concomitant]
     Indication: ANGINA PECTORIS
     Dosage: 6.4 MG, PRN
     Route: 060
     Dates: start: 20100317
  15. FEXOFENADINE [Concomitant]
     Indication: HYPERSENSITIVITY
     Dosage: 180 MG, QD
     Route: 048
     Dates: start: 20100920
  16. ILARIS [Suspect]
     Indication: GOUTY ARTHRITIS
     Dosage: DOUBLE-BLIND
     Route: 030
     Dates: start: 20110602
  17. BLINDED NO TREATMENT RECEIVED [Suspect]
     Indication: GOUTY ARTHRITIS
     Dosage: DOUBLE-BLIND
     Route: 030
     Dates: start: 20110602
  18. LUTEIN [Concomitant]
     Indication: MEDICAL DIET
     Dosage: 20 MG, QD
     Route: 048
     Dates: start: 20100920
  19. CATAPRES-TTS-2 [Concomitant]
     Indication: HYPERTENSION
     Dosage: 0.2 MG, QW2
     Route: 062
     Dates: start: 20091201
  20. PROSCAR [Concomitant]
     Indication: BENIGN PROSTATIC HYPERPLASIA
     Dosage: 5 MG, QD
     Route: 048
     Dates: start: 20100312, end: 20110513
  21. OMEPRAZOLE [Concomitant]
     Indication: GASTROOESOPHAGEAL REFLUX DISEASE
     Dosage: 20 MG, BID
     Route: 048
     Dates: start: 20100722

REACTIONS (2)
  - DELIRIUM [None]
  - CONCOMITANT DISEASE PROGRESSION [None]
